FAERS Safety Report 10307461 (Version 3)
Quarter: 2014Q4

REPORT INFORMATION
  Report Type: Spontaneous
  Country: JP (occurrence: JP)
  Receive Date: 20140716
  Receipt Date: 20141027
  Transmission Date: 20150528
  Serious: Yes (Death, Other)
  Sender: FDA-Public Use
  Company Number: PHHY2014JP086265

PATIENT
  Age: 81 Year
  Sex: Male

DRUGS (1)
  1. ZOMETA [Suspect]
     Active Substance: ZOLEDRONIC ACID
     Indication: METASTASES TO BONE
     Dosage: 4 MG, PER ADMINISTRATION
     Route: 065
     Dates: start: 20110114, end: 20110210

REACTIONS (14)
  - Respiratory failure [Fatal]
  - Prostate cancer [Fatal]
  - Osteolysis [Unknown]
  - Erythema [Unknown]
  - Gingivitis [Unknown]
  - Metastases to bone [Unknown]
  - Osteonecrosis of jaw [Not Recovered/Not Resolved]
  - Tenderness [Unknown]
  - Malignant neoplasm progression [Fatal]
  - Tooth loss [Unknown]
  - Exposed bone in jaw [Not Recovered/Not Resolved]
  - Swelling [Unknown]
  - Pain [Unknown]
  - Soft tissue infection [Unknown]

NARRATIVE: CASE EVENT DATE: 20110318
